FAERS Safety Report 18229742 (Version 2)
Quarter: 2020Q4

REPORT INFORMATION
  Report Type: Spontaneous
  Country: FR (occurrence: FR)
  Receive Date: 20200903
  Receipt Date: 20201029
  Transmission Date: 20210113
  Serious: Yes (Other)
  Sender: FDA-Public Use
  Company Number: FR-TEVA-2020-FR-1822423

PATIENT
  Age: 73 Year
  Sex: Female
  Weight: 83 kg

DRUGS (13)
  1. MACROGOL 4000 [Concomitant]
     Active Substance: POLYETHYLENE GLYCOL 4000
     Dosage: UNIT DOSE : 4 DOSAGE FORMS
     Route: 048
  2. VITAMINE B12 [Concomitant]
     Active Substance: CYANOCOBALAMIN
     Dosage: UNIT DOSE : 1 DOSAGE FORMS
     Route: 030
  3. BISOPROLOL (FUMARATE ACIDE DE) [Concomitant]
     Active Substance: BISOPROLOL FUMARATE
     Dosage: UNIT DOSE : 1.25 MG
     Route: 048
  4. FUROSEMIDE. [Concomitant]
     Active Substance: FUROSEMIDE
     Dosage: UNIT DOSE : 40 MG
     Route: 048
  5. TARDYFERON [Suspect]
     Active Substance: FERROUS SULFATE
     Indication: ANAEMIA
     Dosage: UNIT DOSE : 2 DOSAGE FORMS
     Route: 048
     Dates: end: 20200721
  6. ZOLPIDEM [Concomitant]
     Active Substance: ZOLPIDEM TARTRATE
     Dosage: 10 MG
     Route: 048
  7. KALEORID LP 1000 MG, COMPRIME A LIBERATION PROLONGEE [Concomitant]
     Active Substance: POTASSIUM CHLORIDE
     Dosage: UNIT DOSE : 1000 MG
     Route: 048
  8. GAVISCON [Concomitant]
     Active Substance: ALUMINUM HYDROXIDE\MAGNESIUM CARBONATE
     Dosage: UNIT DOSE : 3 DOSAGE FORMS
     Route: 048
  9. CREON [Concomitant]
     Active Substance: PANCRELIPASE AMYLASE\PANCRELIPASE LIPASE\PANCRELIPASE PROTEASE
     Dosage: UNIT DOSE : 3 DOSAGE FORMS
     Route: 048
  10. CONTRAMAL 50 MG, GELULE [Concomitant]
     Active Substance: TRAMADOL HYDROCHLORIDE
     Dosage: UNIT DOSE : 200MG
     Route: 048
  11. PARACETAMOL [Concomitant]
     Active Substance: ACETAMINOPHEN
     Dosage: UNIT DOSE : 6 DOSAGE FORMS
     Route: 048
  12. LEVOFLOXACINE [Suspect]
     Active Substance: LEVOFLOXACIN
     Indication: INFECTION
     Dosage: UNIT DOSE :1000 MG
     Route: 048
     Dates: start: 20191115, end: 20200721
  13. PANTOPRAZOLE [Concomitant]
     Active Substance: PANTOPRAZOLE
     Dosage: UNIT DOSE : 40 MG
     Route: 048

REACTIONS (1)
  - Melanoderma [Recovering/Resolving]

NARRATIVE: CASE EVENT DATE: 2020
